FAERS Safety Report 24459570 (Version 1)
Quarter: 2024Q4

REPORT INFORMATION
  Report Type: Report from Study
  Country: RO (occurrence: RO)
  Receive Date: 20241018
  Receipt Date: 20241018
  Transmission Date: 20250114
  Serious: No
  Sender: ROCHE
  Company Number: RO-ROCHE-3531590

PATIENT
  Age: 43 Year
  Sex: Female
  Weight: 65.0 kg

DRUGS (1)
  1. MABTHERA [Suspect]
     Active Substance: RITUXIMAB
     Indication: Osteoporosis
     Dosage: 500 MG/50 ML
     Route: 065

REACTIONS (3)
  - Off label use [Unknown]
  - Pain [Unknown]
  - Visual impairment [Unknown]
